FAERS Safety Report 5568610-6 (Version None)
Quarter: 2008Q1

REPORT INFORMATION
  Report Type: 
  Country: None (occurrence: None)
  Receive Date: 20071220
  Receipt Date: 20071206
  Transmission Date: 20080703
  Serious: Yes (Other)
  Sender: FDA-Public Use
  Company Number: DE-BAYER-DE-2007-041972

PATIENT
  Sex: Female

DRUGS (1)
  1. DROSPIRENONE AND ETHINYL ESTRADIOL [Suspect]
     Indication: ORAL CONTRACEPTION
     Route: 048
     Dates: start: 20010101

REACTIONS (3)
  - INTRACRANIAL VENOUS SINUS THROMBOSIS [None]
  - MENINGITIS [None]
  - MIDDLE EAR INFLAMMATION [None]
